FAERS Safety Report 11341821 (Version 3)
Quarter: 2015Q3

REPORT INFORMATION
  Report Type: Report from Study
  Country: CN (occurrence: CN)
  Receive Date: 20150805
  Receipt Date: 20150908
  Transmission Date: 20151125
  Serious: Yes (Death, Hospitalization, Other)
  Sender: FDA-Public Use
  Company Number: CN-ASTELLAS-2015US027595

PATIENT
  Age: 69 Year
  Sex: Female

DRUGS (1)
  1. ERLOTINIB [Suspect]
     Active Substance: ERLOTINIB
     Indication: NON-SMALL CELL LUNG CANCER
     Route: 048
     Dates: start: 20150402

REACTIONS (5)
  - Asphyxia [Fatal]
  - Arterial rupture [Unknown]
  - Haemoptysis [Unknown]
  - Obstructive airways disorder [Fatal]
  - Cough [Recovering/Resolving]

NARRATIVE: CASE EVENT DATE: 20150714
